FAERS Safety Report 21173676 (Version 1)
Quarter: 2022Q3

REPORT INFORMATION
  Report Type: Spontaneous
  Country: US (occurrence: US)
  Receive Date: 20220804
  Receipt Date: 20220804
  Transmission Date: 20221027
  Serious: No
  Sender: FDA-Public Use
  Company Number: US-PERRIGO-21US024753

PATIENT
  Sex: Female

DRUGS (2)
  1. LORATADINE [Suspect]
     Active Substance: LORATADINE
     Indication: Hypersensitivity
     Dosage: UNKNOWN, UNKNOWN
     Route: 048
     Dates: start: 20210909, end: 20210909
  2. LORATADINE [Suspect]
     Active Substance: LORATADINE
     Indication: Urticaria

REACTIONS (2)
  - Drug effective for unapproved indication [Recovered/Resolved]
  - Expired product administered [Recovered/Resolved]

NARRATIVE: CASE EVENT DATE: 20210909
